FAERS Safety Report 6685096 (Version 3)
Quarter: 2020Q3

REPORT INFORMATION
  Report Type: Report from Study
  Country: US (occurrence: US)
  Receive Date: 20080627
  Receipt Date: 20080829
  Transmission Date: 20201105
  Serious: Yes (Death, Other)
  Sender: FDA-Public Use
  Company Number: US-ROCHE-572033

PATIENT
  Age: 89 Year
  Sex: Female
  Weight: 46.3 kg

DRUGS (2)
  1. IBANDRONIC ACID. [Suspect]
     Active Substance: IBANDRONIC ACID
     Indication: PRODUCT USED FOR UNKNOWN INDICATION
     Route: 065
  2. PHENERGAN [Suspect]
     Active Substance: PROMETHAZINE HYDROCHLORIDE
     Indication: PRODUCT USED FOR UNKNOWN INDICATION
     Dosage: GIVEN 12.5 MG IVPB
     Route: 042

REACTIONS (2)
  - Product administration error [Fatal]
  - Pneumonia [Unknown]

NARRATIVE: CASE EVENT DATE: 20080518
